FAERS Safety Report 11099640 (Version 1)
Quarter: 2015Q2

REPORT INFORMATION
  Report Type: Spontaneous
  Country: GB (occurrence: GB)
  Receive Date: 20150508
  Receipt Date: 20150508
  Transmission Date: 20150821
  Serious: Yes (Other)
  Sender: FDA-Public Use
  Company Number: GB-MYLANLABS-2015M1015205

PATIENT

DRUGS (1)
  1. FLUOROURACIL. [Suspect]
     Active Substance: FLUOROURACIL
     Indication: CARCINOMA IN SITU OF PENIS
     Dosage: APPLIED TWICE DAILY AND LEFT ON UNTIL ABSORBED
     Route: 061

REACTIONS (1)
  - Phimosis [Unknown]
